FAERS Safety Report 24270228 (Version 1)
Quarter: 2024Q3

REPORT INFORMATION
  Report Type: Spontaneous
  Country: US (occurrence: US)
  Receive Date: 20240830
  Receipt Date: 20240830
  Transmission Date: 20241016
  Serious: No
  Sender: GE HEALTHCARE
  Company Number: US-GE HEALTHCARE-2024CSU006212

PATIENT
  Age: 77 Year
  Sex: Female
  Weight: 74.8 kg

DRUGS (1)
  1. VIZAMYL [Suspect]
     Active Substance: FLUTEMETAMOL F-18
     Indication: Positron emission tomogram
     Dosage: 220.15 MBQ, TOTAL
     Route: 042
     Dates: start: 20240517, end: 20240517

REACTIONS (3)
  - Muscle spasms [Recovered/Resolved]
  - Neck pain [Recovered/Resolved]
  - Spinal pain [Recovered/Resolved]

NARRATIVE: CASE EVENT DATE: 20240517
